FAERS Safety Report 19031601 (Version 1)
Quarter: 2021Q1

REPORT INFORMATION
  Report Type: Spontaneous
  Country: US (occurrence: US)
  Receive Date: 20210319
  Receipt Date: 20210319
  Transmission Date: 20210420
  Serious: Yes (Other)
  Sender: FDA-Public Use
  Company Number: US-ASTRAZENECA-2021A154039

PATIENT
  Sex: Female

DRUGS (3)
  1. ACTOS [Concomitant]
     Active Substance: PIOGLITAZONE HYDROCHLORIDE
  2. METFORMIN [Concomitant]
     Active Substance: METFORMIN HYDROCHLORIDE
  3. FARXIGA [Suspect]
     Active Substance: DAPAGLIFLOZIN PROPANEDIOL
     Indication: BLOOD GLUCOSE ABNORMAL
     Route: 048

REACTIONS (8)
  - Pollakiuria [Unknown]
  - Blood ketone body [Unknown]
  - Glycosylated haemoglobin increased [Unknown]
  - Ketoacidosis [Unknown]
  - Dizziness [Unknown]
  - Disorientation [Unknown]
  - Weight increased [Unknown]
  - Blood glucose increased [Unknown]
